FAERS Safety Report 21558904 (Version 1)
Quarter: 2022Q4

REPORT INFORMATION
  Report Type: Spontaneous
  Country: US (occurrence: None)
  Receive Date: 20221104
  Receipt Date: 20221104
  Transmission Date: 20230113
  Serious: Yes (Hospitalization)
  Sender: FDA-Public Use
  Company Number: None

PATIENT
  Age: 52 Year
  Sex: Male
  Weight: 108 kg

DRUGS (6)
  1. CYCLOPHOSPHAMIDE [Suspect]
     Active Substance: CYCLOPHOSPHAMIDE
     Dates: end: 20220929
  2. CYTARABINE [Suspect]
     Active Substance: CYTARABINE
     Dates: end: 20220927
  3. SPRYCEL [Suspect]
     Active Substance: DASATINIB
     Dates: end: 20220929
  4. DOXORUBICIN HYDROCHLORIDE [Suspect]
     Active Substance: DOXORUBICIN HYDROCHLORIDE
     Dates: end: 20220929
  5. MESNA [Suspect]
     Active Substance: MESNA
     Dates: end: 20220929
  6. VINCRISTINE SULFATE [Suspect]
     Active Substance: VINCRISTINE SULFATE
     Dates: end: 20220929

REACTIONS (6)
  - Therapy interrupted [None]
  - Pyrexia [None]
  - Diarrhoea [None]
  - Incontinence [None]
  - Fatigue [None]
  - Infection [None]

NARRATIVE: CASE EVENT DATE: 20221031
